FAERS Safety Report 25025128 (Version 2)
Quarter: 2025Q1

REPORT INFORMATION
  Report Type: Spontaneous
  Country: US (occurrence: US)
  Receive Date: 20250228
  Receipt Date: 20250304
  Transmission Date: 20250408
  Serious: No
  Sender: PFIZER
  Company Number: US-PFIZER INC-PV202500023850

PATIENT
  Age: 44 Year
  Sex: Female
  Weight: 82.721 kg

DRUGS (4)
  1. MEKTOVI [Suspect]
     Active Substance: BINIMETINIB
     Indication: Metastatic malignant melanoma
     Dosage: TAKE 2 TABLETS BY MOUTH TWICE A DAY
     Route: 048
     Dates: start: 20210629
  2. MEKTOVI [Suspect]
     Active Substance: BINIMETINIB
     Indication: Malignant melanoma
     Dosage: TAKE THREE 15 MG (45 MG) TABLETS BY MOUTH TWICE DAILY
     Route: 048
  3. BRAFTOVI [Suspect]
     Active Substance: ENCORAFENIB
     Dosage: TAKE 4 CAPSULES BY MOUTH AT BEDTIME
     Route: 048
     Dates: start: 20210629
  4. BRAFTOVI [Suspect]
     Active Substance: ENCORAFENIB
     Dosage: TAKE SIX 75 MG (450 MG) CAPSULES BY MOUTH ONCE DAILY
     Route: 048

REACTIONS (1)
  - Neoplasm progression [Unknown]
